FAERS Safety Report 21998108 (Version 1)
Quarter: 2023Q1

REPORT INFORMATION
  Report Type: Spontaneous
  Country: JP (occurrence: JP)
  Receive Date: 20230216
  Receipt Date: 20230216
  Transmission Date: 20230418
  Serious: Yes (Death, Life-Threatening, Other)
  Sender: FDA-Public Use
  Company Number: JP-AMGEN-JPNSP2023023323

PATIENT
  Age: 87 Year
  Sex: Female
  Weight: 38.1 kg

DRUGS (11)
  1. EVENITY [Suspect]
     Active Substance: ROMOSOZUMAB-AQQG
     Indication: Osteoporosis
     Dosage: 210 MILLIGRAM
     Route: 058
     Dates: start: 20220401, end: 20221117
  2. ELDECALCITOL [Suspect]
     Active Substance: ELDECALCITOL
     Indication: Osteoporosis
     Dosage: 0.75 MICROGRAM, QD
     Route: 065
     Dates: end: 20221130
  3. POTASSIUM ASPARTATE [Concomitant]
     Active Substance: POTASSIUM ASPARTATE
     Dosage: UNK
     Dates: end: 20221201
  4. MAGNESIUM OXIDE [Concomitant]
     Active Substance: MAGNESIUM OXIDE
     Dosage: 990 MILLIGRAM, QD (DIVIDED INTO THREE DOSES)
     Dates: end: 20221130
  5. FAMOTIDINE [Concomitant]
     Active Substance: FAMOTIDINE
     Dosage: 10 MILLIGRAM, QD
     Dates: end: 20221201
  6. DONEPEZIL [Concomitant]
     Active Substance: DONEPEZIL
     Dosage: 5 MILLIGRAM, QD (ONCE A DAY)
     Dates: end: 20221201
  7. AMLODIPINE [Concomitant]
     Active Substance: AMLODIPINE BESYLATE
     Dosage: 2.5 MILLIGRAM, QD (ONCE A DAY IN THE MORNING)
     Dates: end: 20221201
  8. LINZESS [Concomitant]
     Active Substance: LINACLOTIDE
     Dosage: 0.5 MILLIGRAM, QD (ONCE A DAY IN THE EVENING)
     Dates: end: 20221201
  9. BELSOMRA [Concomitant]
     Active Substance: SUVOREXANT
     Dosage: 15 MILLIGRAM, QD (ONCE A DAY BEFORE BEDTIME)
     Dates: end: 20221201
  10. AMBROXOL HYDROCHLORIDE [Concomitant]
     Active Substance: AMBROXOL HYDROCHLORIDE
     Dosage: 45 MILLIGRAM, QD (ONCE A DAY IN THE MORNING)
     Dates: end: 20221201
  11. ACETAMINOPHEN [Concomitant]
     Active Substance: ACETAMINOPHEN
     Dosage: 1500 MILLIGRAM, QD (DIVIDED INTO THREE DOSES)
     Dates: end: 20221130

REACTIONS (6)
  - Hypercalcaemia [Fatal]
  - Cardiac arrest [Fatal]
  - Bacterial infection [Unknown]
  - Blood creatinine increased [Unknown]
  - Blood magnesium increased [Unknown]
  - Blood albumin decreased [Unknown]

NARRATIVE: CASE EVENT DATE: 20220916
